FAERS Safety Report 9424228 (Version 3)
Quarter: 2013Q3

REPORT INFORMATION
  Report Type: Spontaneous
  Country: DK (occurrence: DK)
  Receive Date: 20130729
  Receipt Date: 20130827
  Transmission Date: 20140515
  Serious: Yes (Other)
  Sender: FDA-Public Use
  Company Number: DK-ACCORD-018646

PATIENT
  Age: 62 Year
  Sex: Female

DRUGS (13)
  1. GEMCITABINE [Suspect]
     Indication: BREAST CANCER
     Route: 065
  2. CARBOPLATIN [Suspect]
     Indication: BREAST CANCER
     Route: 065
  3. CYCLOPHOSPHAMIDE [Suspect]
     Indication: BREAST CANCER
     Route: 065
     Dates: start: 2003
  4. LAPATINIB [Suspect]
     Indication: BREAST CANCER
     Dosage: UNK
     Route: 065
     Dates: start: 20100719, end: 201201
  5. METHOTREXATE [Suspect]
     Indication: BREAST CANCER
     Route: 065
     Dates: start: 2003
  6. EPIRUBICIN [Suspect]
     Indication: BREAST CANCER
     Dosage: MAXIMUM DOSE
     Route: 065
     Dates: start: 2003
  7. ERIBULIN [Suspect]
     Indication: BREAST CANCER
     Route: 065
     Dates: start: 201201, end: 201301
  8. FLUOROURACIL [Suspect]
     Indication: BREAST CANCER
     Route: 065
     Dates: start: 2003
  9. HERCEPTIN [Suspect]
     Indication: BREAST CANCER
     Route: 065
     Dates: start: 200701
  10. XELODA [Suspect]
     Indication: BREAST CANCER
     Route: 065
     Dates: start: 200812
  11. VINORELBINE [Suspect]
     Indication: BREAST CANCER
     Route: 065
  12. TAXOTERE [Suspect]
     Indication: BREAST CANCER
     Route: 065
     Dates: start: 200701
  13. CORODIL [Concomitant]
     Indication: CARDIAC DISORDER
     Route: 065

REACTIONS (3)
  - Disease progression [Not Recovered/Not Resolved]
  - Cardiac disorder [Unknown]
  - Off label use [Unknown]
